FAERS Safety Report 21794928 (Version 1)
Quarter: 2022Q4

REPORT INFORMATION
  Report Type: Spontaneous
  Country: JP (occurrence: JP)
  Receive Date: 20221229
  Receipt Date: 20221229
  Transmission Date: 20230113
  Serious: Yes (Hospitalization)
  Sender: FDA-Public Use
  Company Number: JP-ORGANON-O2212JPN002135

PATIENT
  Age: 59 Year
  Sex: Female

DRUGS (1)
  1. EZETIMIBE [Suspect]
     Active Substance: EZETIMIBE
     Dosage: 10 MG (10 MG/ DAY)
     Route: 048
     Dates: start: 202110, end: 202202

REACTIONS (1)
  - Drug-induced liver injury [Unknown]
